FAERS Safety Report 5264186-1 (Version None)
Quarter: 2007Q1

REPORT INFORMATION
  Report Type: 
  Country: None (occurrence: None)
  Receive Date: 20070313
  Receipt Date: 20070307
  Transmission Date: 20070707
  Serious: Yes (Other)
  Sender: FDA-Public Use
  Company Number: US-BOEHRINGER INGELHEIM PHARMACEUTICALS, INC.-2007-BP-03171BP

PATIENT
  Sex: Male

DRUGS (4)
  1. FLOMAX [Suspect]
     Indication: URINARY INCONTINENCE
     Route: 048
     Dates: start: 20061201, end: 20061201
  2. METFORMIN HCL [Concomitant]
     Route: 048
  3. PROTONIX [Concomitant]
     Route: 048
  4. QUINARETIC [Concomitant]

REACTIONS (4)
  - FATIGUE [None]
  - GAIT DISTURBANCE [None]
  - HEPATIC STEATOSIS [None]
  - VARICOSE VEIN [None]
